FAERS Safety Report 19624637 (Version 4)
Quarter: 2022Q1

REPORT INFORMATION
  Report Type: Spontaneous
  Country: CA (occurrence: CA)
  Receive Date: 20210729
  Receipt Date: 20220114
  Transmission Date: 20220423
  Serious: Yes (Other)
  Sender: FDA-Public Use
  Company Number: CA-CELLTRION INC.-2021CA006341

PATIENT

DRUGS (11)
  1. INFLECTRA [Suspect]
     Active Substance: INFLIXIMAB-DYYB
     Indication: Crohn^s disease
     Dosage: 300 MG, AT 0, 2, 6 WEEK DOSE, THEN EVERY 8 WEEKS
     Route: 042
  2. INFLECTRA [Suspect]
     Active Substance: INFLIXIMAB-DYYB
     Dosage: 300 MG, AT 0, 2, 6 WEEK DOSE, THEN EVERY 8 WEEKS
     Route: 042
     Dates: start: 20210408
  3. INFLECTRA [Suspect]
     Active Substance: INFLIXIMAB-DYYB
     Dosage: 300 MG, AT 0, 2, 6 WEEK DOSE, THEN EVERY 8 WEEKS
     Route: 042
     Dates: start: 20210424
  4. INFLECTRA [Suspect]
     Active Substance: INFLIXIMAB-DYYB
     Dosage: 350 MG, 1 DOSE AS PER WEIGHT
     Route: 042
     Dates: start: 20210715
  5. INFLECTRA [Suspect]
     Active Substance: INFLIXIMAB-DYYB
     Dosage: 350 MG, 1 DOSE AS PER WEIGHT
     Route: 042
     Dates: start: 20210715
  6. INFLECTRA [Suspect]
     Active Substance: INFLIXIMAB-DYYB
     Dosage: 5 MG/KG, EVERY 8 WEEK, MAINTENANCE DOSE, AS PER WEIGHT ON DAY OF INFUSION
     Route: 042
     Dates: start: 20210915
  7. INFLECTRA [Suspect]
     Active Substance: INFLIXIMAB-DYYB
     Dosage: 350 MG, 1 DOSE AS PER WEIGHT
     Route: 042
     Dates: start: 20211108
  8. INFLECTRA [Suspect]
     Active Substance: INFLIXIMAB-DYYB
     Dosage: 5 MG/KG, MAINTENANCE DOSE, AS PER WEIGHT ON DAY OF INFUSION
     Route: 042
     Dates: start: 20220104
  9. ASACOL [Concomitant]
     Active Substance: MESALAMINE
     Dosage: 800 MG, 1X/DAY
  10. PREDNISONE [Concomitant]
     Active Substance: PREDNISONE
     Dosage: 1 DF, 1X/DAY 5 PILLS A DAY
  11. TYLENOL [Concomitant]
     Active Substance: ACETAMINOPHEN
     Dosage: 1 DF, AS NEEDED

REACTIONS (3)
  - Weight increased [Recovering/Resolving]
  - Incorrect dose administered [Unknown]
  - Fatigue [Not Recovered/Not Resolved]

NARRATIVE: CASE EVENT DATE: 20210401
